FAERS Safety Report 18412848 (Version 1)
Quarter: 2020Q4

REPORT INFORMATION
  Report Type: Spontaneous
  Country: US (occurrence: US)
  Receive Date: 20201021
  Receipt Date: 20201021
  Transmission Date: 20210114
  Serious: Yes (Other)
  Sender: FDA-Public Use
  Company Number: US-TEVA-2020-US-1840712

PATIENT
  Sex: Male

DRUGS (14)
  1. HYDROMORPHONE [Suspect]
     Active Substance: HYDROMORPHONE
     Route: 048
  2. PERCOCET [Suspect]
     Active Substance: ACETAMINOPHEN\OXYCODONE HYDROCHLORIDE
     Route: 065
  3. BUPRENORPHINE. [Suspect]
     Active Substance: BUPRENORPHINE
     Route: 062
  4. OXYCODONE [Suspect]
     Active Substance: OXYCODONE
     Dosage: FORM OF ADMIN: EXTENDED-RELEASE TABLETS
     Route: 065
  5. BUTRANS [Suspect]
     Active Substance: BUPRENORPHINE
     Route: 065
  6. HYDROMORPHONE [Suspect]
     Active Substance: HYDROMORPHONE
     Dosage: FORM OF ADMIN: IMMEDIATE-RELEASE TABLETS
     Route: 065
  7. VICODIN [Suspect]
     Active Substance: ACETAMINOPHEN\HYDROCODONE BITARTRATE
     Route: 065
  8. HYDROCODONE AND ACETAMINOPHEN [Suspect]
     Active Substance: ACETAMINOPHEN\HYDROCODONE
     Route: 065
  9. OXYCODONE AND ACETAMINOPHEN [Suspect]
     Active Substance: ACETAMINOPHEN\OXYCODONE HYDROCHLORIDE
     Route: 065
  10. MORPHINE [Suspect]
     Active Substance: MORPHINE
     Dosage: FORM OF ADMIN: EXTENDED-RELEASE TABLETS
     Route: 065
  11. OXYCODONE [Suspect]
     Active Substance: OXYCODONE
     Dosage: FORM OF ADMIN: IMMEDIATE-RELEASE TABLETS
     Route: 065
  12. OXYCONTIN [Suspect]
     Active Substance: OXYCODONE HYDROCHLORIDE
     Route: 065
  13. TRAMADOL. [Suspect]
     Active Substance: TRAMADOL
     Dosage: FORM OF ADMIN: EXTENDED-RELEASE TABLETS
     Route: 065
  14. DILAUDID [Suspect]
     Active Substance: HYDROMORPHONE HYDROCHLORIDE
     Route: 065

REACTIONS (7)
  - Drug dependence [Unknown]
  - Bladder cancer [Unknown]
  - Anxiety [Unknown]
  - Overdose [Unknown]
  - Substance use disorder [Unknown]
  - Skin cancer [Unknown]
  - Depression [Unknown]
